FAERS Safety Report 10129247 (Version 1)
Quarter: 2014Q2

REPORT INFORMATION
  Report Type: Spontaneous
  Country: US (occurrence: US)
  Receive Date: 20140428
  Receipt Date: 20140428
  Transmission Date: 20141212
  Serious: No
  Sender: FDA-Public Use
  Company Number: US-ABBVIE-14P-163-1202478-00

PATIENT
  Age: 64 Year
  Sex: Male

DRUGS (4)
  1. ANDROGEL [Suspect]
     Indication: BLOOD TESTOSTERONE DECREASED
     Dates: start: 20140126, end: 20140130
  2. SIMVASTATIN [Concomitant]
     Indication: PRODUCT USED FOR UNKNOWN INDICATION
  3. ZETIA [Concomitant]
     Indication: PRODUCT USED FOR UNKNOWN INDICATION
  4. ATENOLOL [Concomitant]
     Indication: PRODUCT USED FOR UNKNOWN INDICATION

REACTIONS (7)
  - Chest discomfort [Recovered/Resolved]
  - Application site rash [Recovered/Resolved]
  - Dyspnoea [Recovered/Resolved]
  - Application site pruritus [Recovered/Resolved]
  - Insomnia [Unknown]
  - Hypersensitivity [Unknown]
  - Rash [Unknown]
